FAERS Safety Report 10191246 (Version 1)
Quarter: 2014Q2

REPORT INFORMATION
  Report Type: Spontaneous
  Country: GB (occurrence: None)
  Receive Date: 20140521
  Receipt Date: 20140521
  Transmission Date: 20141212
  Serious: Yes (Congenital Anomaly)
  Sender: FDA-Public Use
  Company Number: 2014/030

PATIENT
  Sex: Male
  Weight: 2.41 kg

DRUGS (2)
  1. VALPROIC ACID [Suspect]
     Indication: EPILEPSY
  2. CARBAMAZEPINE [Concomitant]

REACTIONS (4)
  - Foetal anticonvulsant syndrome [None]
  - Retinal coloboma [None]
  - Foetal exposure during pregnancy [None]
  - Caesarean section [None]
